FAERS Safety Report 9331719 (Version 4)
Quarter: 2013Q4

REPORT INFORMATION
  Report Type: Spontaneous
  Country: US (occurrence: None)
  Receive Date: 20130523
  Receipt Date: 20131212
  Transmission Date: 20140711
  Serious: Yes (Hospitalization)
  Sender: FDA-Public Use
  Company Number: 003-111

PATIENT
  Age: 70 Year
  Sex: Female

DRUGS (1)
  1. CROFAB [Suspect]
     Indication: SNAKE BITE
     Dosage: 30 VIALS TOTAL
     Dates: start: 20130508, end: 20130514

REACTIONS (5)
  - International normalised ratio increased [None]
  - Contusion [None]
  - Haemorrhage [None]
  - Swelling [None]
  - Blood fibrinogen increased [None]
